FAERS Safety Report 20634031 (Version 2)
Quarter: 2022Q2

REPORT INFORMATION
  Report Type: Report from Study
  Country: ES (occurrence: ES)
  Receive Date: 20220324
  Receipt Date: 20220426
  Transmission Date: 20220721
  Serious: Yes (Death, Other)
  Sender: FDA-Public Use
  Company Number: ES-BRISTOL-MYERS SQUIBB COMPANY-BMS-2022-039943

PATIENT
  Age: 69 Year
  Sex: Male
  Weight: 74 kg

DRUGS (12)
  1. APIXABAN [Suspect]
     Active Substance: APIXABAN
     Indication: Cerebrovascular accident prophylaxis
     Route: 065
  2. DEXKETOPROFEN [Concomitant]
     Active Substance: DEXKETOPROFEN
     Indication: Muscle contracture
     Route: 048
     Dates: start: 20210125, end: 20220120
  3. MANIDIPINE [Concomitant]
     Active Substance: MANIDIPINE
     Indication: Hypertension
     Route: 055
     Dates: start: 20210125, end: 20220120
  4. OMEPRAZOLE [Concomitant]
     Active Substance: OMEPRAZOLE
     Indication: Dyspepsia
     Route: 048
     Dates: start: 20210714, end: 20220120
  5. MORPHINE [Concomitant]
     Active Substance: MORPHINE
     Indication: Neoplasm malignant
     Route: 048
     Dates: start: 20210125, end: 20220120
  6. HALOPERIDOL [Concomitant]
     Active Substance: HALOPERIDOL
     Indication: Nausea
     Route: 048
     Dates: start: 20211103, end: 20220120
  7. TIZANIDINE [Concomitant]
     Active Substance: TIZANIDINE
     Indication: Neoplasm malignant
     Route: 048
  8. ENOXAPARIN [Concomitant]
     Active Substance: ENOXAPARIN
     Indication: Pulmonary embolism
     Route: 058
     Dates: start: 20220104, end: 20220120
  9. GABAPENTIN [Concomitant]
     Active Substance: GABAPENTIN
     Indication: Neoplasm malignant
     Route: 048
     Dates: start: 20210125, end: 20220120
  10. Umecli?dinium;vilanterol [Concomitant]
     Indication: Chronic obstructive pulmonary disease
     Route: 065
     Dates: start: 20210125, end: 20220120
  11. FOLIC ACID;VITAMIN B12 [Concomitant]
     Indication: Neoplasm malignant
     Route: 048
     Dates: start: 20210125, end: 20220120
  12. LIDOCAINE;PROCAINE [Concomitant]
     Indication: Neoplasm malignant
     Route: 050
     Dates: start: 20210125, end: 20220120

REACTIONS (1)
  - Non-small cell lung cancer [Fatal]

NARRATIVE: CASE EVENT DATE: 20220118
